FAERS Safety Report 7902636 (Version 2)
Quarter: 2013Q2

REPORT INFORMATION
  Report Type: Report from Study
  Country: DE (occurrence: DE)
  Receive Date: 20110418
  Receipt Date: 20130522
  Transmission Date: 20140414
  Serious: Yes (Hospitalization)
  Sender: FDA-Public Use
  Company Number: DE-CELGENEUS-062-50794-11040373

PATIENT
  Age: 73 Year
  Sex: Male
  Weight: 63 kg

DRUGS (1)
  1. VIDAZA [Suspect]
     Indication: ACUTE MYELOID LEUKAEMIA
     Dosage: 68 MILLIGRAM
     Route: 058
     Dates: start: 20110129, end: 20110202

REACTIONS (1)
  - Pseudomembranous colitis [Recovered/Resolved]
